FAERS Safety Report 16635718 (Version 1)
Quarter: 2019Q3

REPORT INFORMATION
  Report Type: Spontaneous
  Country: PE (occurrence: PE)
  Receive Date: 20190726
  Receipt Date: 20190726
  Transmission Date: 20191004
  Serious: Yes (Other)
  Sender: FDA-Public Use
  Company Number: PE-ROCHE-2359600

PATIENT
  Sex: Female

DRUGS (2)
  1. ACTEMRA [Suspect]
     Active Substance: TOCILIZUMAB
     Indication: JUVENILE IDIOPATHIC ARTHRITIS
     Route: 042
     Dates: start: 2017
  2. ACTEMRA [Suspect]
     Active Substance: TOCILIZUMAB
     Indication: JUVENILE IDIOPATHIC ARTHRITIS
     Route: 058
     Dates: start: 201809

REACTIONS (7)
  - Liver disorder [Unknown]
  - Blood creatine phosphokinase increased [Unknown]
  - Renal impairment [Unknown]
  - Leukopenia [Recovering/Resolving]
  - Discomfort [Unknown]
  - Hepatitis [Unknown]
  - Transaminases increased [Unknown]
